FAERS Safety Report 9858821 (Version 2)
Quarter: 2014Q1

REPORT INFORMATION
  Report Type: Spontaneous
  Country: US (occurrence: US)
  Receive Date: 20140131
  Receipt Date: 20140131
  Transmission Date: 20141002
  Serious: Yes (Hospitalization, Other)
  Sender: FDA-Public Use
  Company Number: US-ASTRAZENECA-2013SE27788

PATIENT
  Age: 67 Year
  Sex: Female
  Weight: 54.4 kg

DRUGS (12)
  1. NEXIUM [Suspect]
     Indication: GASTRIC DISORDER
     Route: 048
  2. NEXIUM [Suspect]
     Indication: GASTRIC DISORDER
     Route: 048
     Dates: start: 2008
  3. NEXIUM [Suspect]
     Indication: GASTRIC DISORDER
     Route: 048
     Dates: start: 20100708
  4. PRILOSEC OTC [Suspect]
     Dosage: AS NEEDED
     Route: 048
  5. ZANTAC OTC [Concomitant]
  6. TUMS [Concomitant]
  7. VITAMIN C [Concomitant]
  8. VITAMIN E [Concomitant]
  9. VITAMIN B12 [Concomitant]
  10. MAGNESIUM [Concomitant]
  11. VITAMIN D [Concomitant]
  12. TRAZADONE [Concomitant]
     Indication: SLEEP DISORDER
     Dosage: ONE TO TWO AT BED TIME AS NEEDED

REACTIONS (8)
  - Hip fracture [Unknown]
  - Fall [Unknown]
  - Wrist fracture [Unknown]
  - Osteoporosis [Unknown]
  - Bone disorder [Unknown]
  - Multiple fractures [Unknown]
  - Spinal compression fracture [Unknown]
  - Osteopenia [Unknown]
